FAERS Safety Report 9682872 (Version 1)
Quarter: 2013Q4

REPORT INFORMATION
  Report Type: Spontaneous
  Country: FR (occurrence: FR)
  Receive Date: 20131112
  Receipt Date: 20131112
  Transmission Date: 20140711
  Serious: Yes (Hospitalization)
  Sender: FDA-Public Use
  Company Number: FR-SA-2013SA115361

PATIENT
  Age: 50 Year
  Sex: Male

DRUGS (7)
  1. TAVANIC [Suspect]
     Indication: STAPHYLOCOCCAL INFECTION
     Route: 051
     Dates: start: 20130808
  2. RIFAMPICIN [Suspect]
     Indication: STAPHYLOCOCCAL INFECTION
     Route: 051
     Dates: start: 20130808
  3. LOVENOX [Concomitant]
     Route: 051
     Dates: start: 20130822
  4. ZOPHREN [Concomitant]
     Dosage: STRENGTH: 4 MG
     Route: 048
     Dates: start: 20130822
  5. INIPOMP [Concomitant]
     Route: 048
     Dates: start: 20130822
  6. OLMETEC [Concomitant]
     Indication: HYPERTENSION
     Dosage: DOSE REGIMEN DEPENDING FROM THE BLOOD PRESSURE
     Route: 048
  7. TOPALGIC [Concomitant]
     Dosage: STRENGTH: 50 MG
     Route: 048
     Dates: start: 20130822

REACTIONS (1)
  - Tendonitis [Unknown]
